FAERS Safety Report 4335843-6 (Version None)
Quarter: 2004Q2

REPORT INFORMATION
  Report Type: 
  Country: None (occurrence: None)
  Receive Date: 20040405
  Receipt Date: 20040329
  Transmission Date: 20050107
  Serious: Yes (Hospitalization, Congenital Anomaly)
  Sender: FDA-Public Use
  Company Number: 03P-167-0231242-00

PATIENT
  Age: 1 Day
  Sex: Female

DRUGS (2)
  1. VALPROATE SODIUM [Suspect]
  2. VIGABATRIN [Suspect]

REACTIONS (14)
  - CONGENITAL NOSE MALFORMATION [None]
  - DEVELOPMENTAL DELAY [None]
  - DRUG TOXICITY [None]
  - DYSKINESIA [None]
  - EXPRESSIVE LANGUAGE DISORDER [None]
  - FOETAL VALPROATE SYNDROME [None]
  - HYPERTONIA [None]
  - LOW SET EARS [None]
  - MATERNAL DRUGS AFFECTING FOETUS [None]
  - MUSCLE TWITCHING [None]
  - NIPPLE DISORDER [None]
  - PREMATURE BABY [None]
  - SPEECH DISORDER DEVELOPMENTAL [None]
  - STRABISMUS [None]
